FAERS Safety Report 19575604 (Version 14)
Quarter: 2023Q1

REPORT INFORMATION
  Report Type: Report from Study
  Country: JP (occurrence: JP)
  Receive Date: 20210719
  Receipt Date: 20230220
  Transmission Date: 20230418
  Serious: Yes (Hospitalization)
  Sender: FDA-Public Use
  Company Number: JP-ALNYLAM PHARMACEUTICALS, INC.-ALN-2021-001499

PATIENT

DRUGS (32)
  1. ONPATTRO [Suspect]
     Active Substance: PATISIRAN SODIUM
     Indication: Hereditary neuropathic amyloidosis
     Dosage: 14.7 MILLIGRAM
     Route: 041
     Dates: start: 20210621, end: 20210712
  2. ONPATTRO [Suspect]
     Active Substance: PATISIRAN SODIUM
     Dosage: 14.7 MILLIGRAM
     Route: 041
     Dates: start: 20210802, end: 20210802
  3. ONPATTRO [Suspect]
     Active Substance: PATISIRAN SODIUM
     Dosage: 14.7 MILLIGRAM
     Route: 041
     Dates: start: 20210823, end: 20210823
  4. ONPATTRO [Suspect]
     Active Substance: PATISIRAN SODIUM
     Dosage: 14.1 MILLIGRAM
     Route: 041
     Dates: start: 20210913, end: 20210913
  5. ONPATTRO [Suspect]
     Active Substance: PATISIRAN SODIUM
     Dosage: 14.4 MILLIGRAM
     Route: 041
     Dates: start: 20211004, end: 20211025
  6. ONPATTRO [Suspect]
     Active Substance: PATISIRAN SODIUM
     Dosage: 13.8 MILLIGRAM
     Route: 041
     Dates: start: 20211115, end: 20211115
  7. ONPATTRO [Suspect]
     Active Substance: PATISIRAN SODIUM
     Dosage: 14.7 MILLIGRAM
     Route: 041
     Dates: start: 20211206, end: 20211206
  8. ONPATTRO [Suspect]
     Active Substance: PATISIRAN SODIUM
     Dosage: 15 MILLIGRAM
     Route: 041
     Dates: start: 20220104, end: 20220104
  9. ONPATTRO [Suspect]
     Active Substance: PATISIRAN SODIUM
     Dosage: 13.8 MILLIGRAM
     Route: 041
     Dates: start: 20220131, end: 20220131
  10. ONPATTRO [Suspect]
     Active Substance: PATISIRAN SODIUM
     Dosage: 14.4 MILLIGRAM
     Route: 041
     Dates: start: 20220221, end: 20220221
  11. ONPATTRO [Suspect]
     Active Substance: PATISIRAN SODIUM
     Dosage: 14.1 MILLIGRAM
     Route: 041
     Dates: start: 20220314, end: 20220314
  12. ONPATTRO [Suspect]
     Active Substance: PATISIRAN SODIUM
     Dosage: 14.7 MILLIGRAM
     Route: 041
     Dates: start: 20220412, end: 20220412
  13. ONPATTRO [Suspect]
     Active Substance: PATISIRAN SODIUM
     Dosage: 13.8 MILLIGRAM
     Route: 041
     Dates: start: 20220510, end: 20220510
  14. ONPATTRO [Suspect]
     Active Substance: PATISIRAN SODIUM
     Dosage: 14.4 MILLIGRAM
     Route: 041
     Dates: start: 20220607, end: 20220607
  15. ONPATTRO [Suspect]
     Active Substance: PATISIRAN SODIUM
     Dosage: 14.1 MILLIGRAM
     Route: 041
     Dates: start: 20220705, end: 20220705
  16. ONPATTRO [Suspect]
     Active Substance: PATISIRAN SODIUM
     Dosage: 14.4 MILLIGRAM
     Route: 041
     Dates: start: 20220802, end: 20220802
  17. ONPATTRO [Suspect]
     Active Substance: PATISIRAN SODIUM
     Dosage: 13.5 MILLIGRAM
     Route: 041
     Dates: start: 20220830, end: 20220830
  18. ONPATTRO [Suspect]
     Active Substance: PATISIRAN SODIUM
     Dosage: 14.4 MILLIGRAM
     Route: 041
     Dates: start: 20220927, end: 20220927
  19. ONPATTRO [Suspect]
     Active Substance: PATISIRAN SODIUM
     Dosage: 14.1 MILLIGRAM
     Route: 041
     Dates: start: 20221025, end: 20221122
  20. SOLU-MEDROL [Suspect]
     Active Substance: METHYLPREDNISOLONE SODIUM SUCCINATE
     Indication: Prophylaxis
     Dosage: 60 MILLIGRAM, SINGLE
     Route: 041
     Dates: start: 20210802, end: 20221122
  21. DEXAMETHASONE SODIUM PHOSPHATE [Concomitant]
     Active Substance: DEXAMETHASONE SODIUM PHOSPHATE
     Indication: Prophylaxis
     Dosage: 10 MILLIGRAM, SINGLE
     Route: 041
     Dates: start: 20210621, end: 20210712
  22. FAMOTIDINE [Concomitant]
     Active Substance: FAMOTIDINE
     Indication: Prophylaxis
     Dosage: 20 MILLIGRAM, SINGLE
     Route: 041
     Dates: start: 20210621, end: 20221122
  23. POLARAMINE [Concomitant]
     Active Substance: DEXCHLORPHENIRAMINE MALEATE
     Indication: Prophylaxis
     Dosage: 5 MILLIGRAM, SINGLE
     Route: 041
     Dates: start: 20210621, end: 20221122
  24. ACETAMINOPHEN [Concomitant]
     Active Substance: ACETAMINOPHEN
     Indication: Prophylaxis
     Dosage: 500 MILLIGRAM, SINGLE
     Route: 048
     Dates: start: 20210621, end: 20221122
  25. ZYPREXA [Concomitant]
     Active Substance: OLANZAPINE
     Indication: Gastrointestinal disorder
     Dosage: 5 MILLIGRAM, Q3W
     Route: 048
     Dates: start: 20210802, end: 20211206
  26. MAGNESIUM OXIDE [Concomitant]
     Active Substance: MAGNESIUM OXIDE
     Indication: Hereditary neuropathic amyloidosis
     Dosage: 250 MILLIGRAM, TID
     Route: 065
  27. MIYA-BM [Concomitant]
     Active Substance: CLOSTRIDIUM BUTYRICUM SPORES STRAIN M-55
     Indication: Hereditary neuropathic amyloidosis
     Dosage: 1 GRAM, TID
     Route: 048
  28. OLANZAPINE [Concomitant]
     Active Substance: OLANZAPINE
     Indication: Hereditary neuropathic amyloidosis
     Dosage: 5 MILLIGRAM, QD
     Route: 065
  29. SODIUM CHLORIDE [Concomitant]
     Active Substance: SODIUM CHLORIDE
     Indication: Hyponatraemia
     Dosage: 3 GRAM, TID
     Route: 065
  30. SODIUM PICOSULFATE [Concomitant]
     Active Substance: SODIUM PICOSULFATE
     Indication: Hereditary neuropathic amyloidosis
     Dosage: 10 DROP, QD
     Route: 048
  31. VITAMINS [Concomitant]
     Active Substance: VITAMINS
     Indication: Prophylaxis
     Dosage: 1 GRAM, QD
     Route: 048
  32. ZOLPIDEM TARTRATE [Concomitant]
     Active Substance: ZOLPIDEM TARTRATE
     Indication: Insomnia
     Dosage: 5 MILLIGRAM, QD
     Route: 065

REACTIONS (38)
  - Infusion related reaction [Recovered/Resolved]
  - Vomiting [Recovered/Resolved]
  - Feeling hot [Recovered/Resolved]
  - Blood pressure increased [Recovered/Resolved]
  - Infusion related reaction [Recovered/Resolved]
  - Vomiting [Recovered/Resolved]
  - Infusion related reaction [Recovered/Resolved]
  - Vomiting [Recovered/Resolved]
  - Nausea [Recovered/Resolved]
  - Infusion related reaction [Recovered/Resolved]
  - Vomiting [Recovered/Resolved]
  - Pyrexia [Recovered/Resolved]
  - Nausea [Recovered/Resolved]
  - Blood pressure increased [Recovered/Resolved]
  - Infusion related reaction [Recovered/Resolved]
  - Vomiting [Recovered/Resolved]
  - Pyrexia [Recovered/Resolved]
  - Nausea [Recovered/Resolved]
  - Blood pressure increased [Recovered/Resolved]
  - Infusion related reaction [Recovered/Resolved]
  - Vomiting [Recovered/Resolved]
  - Feeling hot [Recovered/Resolved]
  - Blood pressure increased [Recovered/Resolved]
  - Infusion related reaction [Recovered/Resolved]
  - Vomiting [Recovered/Resolved]
  - Vomiting [Recovered/Resolved]
  - Vomiting [Recovered/Resolved]
  - Vomiting [Recovered/Resolved]
  - Vomiting [Recovered/Resolved]
  - Vomiting [Recovered/Resolved]
  - Vomiting [Recovered/Resolved]
  - Vomiting [Recovered/Resolved]
  - Vomiting [Recovered/Resolved]
  - Vomiting [Recovered/Resolved]
  - Vomiting [Recovered/Resolved]
  - Vomiting [Recovered/Resolved]
  - Vomiting [Recovered/Resolved]
  - Vomiting [Recovered/Resolved]

NARRATIVE: CASE EVENT DATE: 20210621
